FAERS Safety Report 7400155-0 (Version None)
Quarter: 2011Q2

REPORT INFORMATION
  Report Type: 
  Country: None (occurrence: None)
  Receive Date: 20110407
  Receipt Date: 20110329
  Transmission Date: 20111010
  Serious: Yes (Hospitalization, Disabling)
  Sender: FDA-Public Use
  Company Number: JP-SHIRE-SPV1-2010-01858

PATIENT

DRUGS (1)
  1. FOSRENOL [Suspect]
     Indication: HYPERPHOSPHATAEMIA
     Dosage: 1500 MG DAILY DOSE; FREQUENCY UNKNOWN
     Route: 048
     Dates: start: 20090525, end: 20101003

REACTIONS (1)
  - GASTROINTESTINAL PERFORATION [None]
